FAERS Safety Report 5452078-4 (Version None)
Quarter: 2007Q3

REPORT INFORMATION
  Report Type: 
  Country: None (occurrence: None)
  Receive Date: 20070912
  Receipt Date: 20070827
  Transmission Date: 20080115
  Serious: Yes (Life-Threatening, Other)
  Sender: FDA-Public Use
  Company Number: 2007US-09584

PATIENT
  Sex: Female

DRUGS (2)
  1. ISOTRETINOIN [Suspect]
     Indication: ACNE
     Dosage: 40 MG, QD, ORAL; 40 MG, BID, ORAL
     Route: 048
     Dates: end: 20070801
  2. ISOTRETINOIN [Suspect]
     Indication: ACNE
     Dosage: 40 MG, QD, ORAL; 40 MG, BID, ORAL
     Route: 048
     Dates: start: 20070712

REACTIONS (1)
  - SUICIDAL IDEATION [None]
